FAERS Safety Report 4680312-7 (Version None)
Quarter: 2005Q2

REPORT INFORMATION
  Report Type: 
  Country: None (occurrence: None)
  Receive Date: 20050601
  Receipt Date: 20050518
  Transmission Date: 20051028
  Serious: Yes (Hospitalization)
  Sender: FDA-Public Use
  Company Number: FR-2005-006436

PATIENT
  Age: 75 Year
  Sex: Male
  Weight: 60 kg

DRUGS (6)
  1. FLUDARA [Suspect]
     Indication: WALDENSTROM'S MACROGLOBULINAEMIA
     Dosage: 40 MG, 1X/DAY, ORAL
     Route: 048
     Dates: start: 20050415, end: 20050416
  2. NEORECORMIN                        (EPOETIN BETA) [Suspect]
     Indication: ANAEMIA
     Dosage: 30000, 1X/WEEK, SUBCUTANEOUS
     Route: 058
     Dates: start: 20041130, end: 20050506
  3. ASASANTIN (DIPYRIDAMOLE, ACETYLSALIYCLIC ACID) [Concomitant]
  4. SECTRAL [Concomitant]
  5. ISOSORBIDE DINITRATE [Concomitant]
  6. PERMIXON                (SERENOA REPENS) [Concomitant]

REACTIONS (6)
  - ANGIONEUROTIC OEDEMA [None]
  - ERYTHEMA [None]
  - PHARYNX DISCOMFORT [None]
  - PRURITUS [None]
  - RASH [None]
  - URTICARIA [None]
